FAERS Safety Report 13236798 (Version 1)
Quarter: 2017Q1

REPORT INFORMATION
  Report Type: Spontaneous
  Country: US (occurrence: US)
  Receive Date: 20170215
  Receipt Date: 20170215
  Transmission Date: 20170428
  Serious: No
  Sender: FDA-Public Use
  Company Number: US-TARO-2016TAR00068

PATIENT
  Age: 46 Year
  Sex: Female
  Weight: 61.22 kg

DRUGS (5)
  1. SEROQUEL [Concomitant]
     Active Substance: QUETIAPINE FUMARATE
  2. TOPICORT [Suspect]
     Active Substance: DESOXIMETASONE
     Indication: DERMATITIS CONTACT
     Dosage: THIN FILM TO POSTAURICULAR AREA ON LEFT SIDE ONLY; UP TO 2X/DAY
     Route: 061
     Dates: start: 20160113, end: 20160113
  3. CLONIDINE HCL [Concomitant]
     Active Substance: CLONIDINE HYDROCHLORIDE
     Dosage: 0.1 MG, 1X/DAY
     Route: 048
     Dates: start: 20160113
  4. FLUOCINOLONE OIL (MANUFACTURER UNKNOWN) [Suspect]
     Active Substance: FLUOCINOLONE
     Indication: PRURITUS
     Dosage: DAILY OR ONCE WEEKLY
     Dates: start: 2009
  5. CHINESE HERBS [Concomitant]
     Active Substance: HERBALS

REACTIONS (7)
  - Skin test positive [Not Recovered/Not Resolved]
  - Insomnia [Unknown]
  - Drug ineffective [None]
  - Dermatitis contact [Recovering/Resolving]
  - Drug dependence [None]
  - Application site irritation [Recovering/Resolving]
  - Parasitic test positive [None]

NARRATIVE: CASE EVENT DATE: 201601
